FAERS Safety Report 6258188-6 (Version None)
Quarter: 2009Q3

REPORT INFORMATION
  Report Type: 
  Country: None (occurrence: None)
  Receive Date: 20090702
  Receipt Date: 20090702
  Transmission Date: 20100115
  Serious: Yes (Hospitalization)
  Sender: FDA-Public Use
  Company Number: None

PATIENT
  Age: 54 Year
  Sex: Male
  Weight: 57.1532 kg

DRUGS (1)
  1. QUALAQUIN [Suspect]
     Indication: BABESIOSIS
     Dates: start: 20090616, end: 20090617

REACTIONS (9)
  - APPARENT DEATH [None]
  - ASTHENIA [None]
  - DIZZINESS [None]
  - HEAD DISCOMFORT [None]
  - HEADACHE [None]
  - JAUNDICE [None]
  - PYREXIA [None]
  - SOMNOLENCE [None]
  - TINNITUS [None]
